FAERS Safety Report 15299453 (Version 1)
Quarter: 2018Q3

REPORT INFORMATION
  Report Type: Report from Study
  Country: DE (occurrence: DE)
  Receive Date: 20180821
  Receipt Date: 20180821
  Transmission Date: 20181010
  Serious: Yes (Other)
  Sender: FDA-Public Use
  Company Number: DE-TEVA-2018-DE-943790

PATIENT
  Age: 74 Year
  Sex: Female
  Weight: 54 kg

DRUGS (9)
  1. VINCRISTINE [Suspect]
     Active Substance: VINCRISTINE
     Indication: B-CELL LYMPHOMA
     Dosage: DAILY DOSE: 2 MG MILLGRAM(S) EVERY 3 WEEKS
     Dates: start: 20160705, end: 20161024
  2. MABTHERA [Suspect]
     Active Substance: RITUXIMAB
     Indication: B-CELL LYMPHOMA
     Route: 042
     Dates: start: 20160704, end: 20160704
  3. SETOFILM [Concomitant]
     Active Substance: ONDANSETRON
     Indication: VOMITING
     Route: 065
  4. CYCLOPHOSPHAMIDE. [Suspect]
     Active Substance: CYCLOPHOSPHAMIDE
     Indication: B-CELL LYMPHOMA
     Dosage: DAILY DOSE: 1200 MG MILLGRAM(S) EVERY 3 WEEKS
     Route: 042
     Dates: start: 20160705, end: 20161024
  5. OMEPRAZOL [Concomitant]
     Active Substance: OMEPRAZOLE
     Indication: ABDOMINAL PAIN UPPER
     Route: 048
     Dates: start: 20160822, end: 20161114
  6. PREDNISOLONE. [Suspect]
     Active Substance: PREDNISOLONE
     Indication: B-CELL LYMPHOMA
     Dosage: DAY 1 TO DAY 5 OF CYCLE
     Route: 048
     Dates: start: 20160704, end: 20161028
  7. DOXORUBICIN [Suspect]
     Active Substance: DOXORUBICIN
     Indication: PRODUCT USED FOR UNKNOWN INDICATION
     Dosage: DAILY DOSE: 80 MG MILLGRAM(S) EVERY 3 WEEKS
     Route: 042
  8. RITUXIMAB. [Suspect]
     Active Substance: RITUXIMAB
     Indication: B-CELL LYMPHOMA
     Dosage: DAILY DOSE: 1400 MG MILLGRAM(S) EVERY 3 WEEKS
     Route: 058
     Dates: start: 20160725, end: 20161024
  9. SETOFILM [Concomitant]
     Active Substance: ONDANSETRON
     Indication: NAUSEA
     Route: 048
     Dates: start: 20160815, end: 20161114

REACTIONS (3)
  - Dyspnoea exertional [Unknown]
  - Leukopenia [Recovered/Resolved]
  - Campylobacter infection [Recovered/Resolved]

NARRATIVE: CASE EVENT DATE: 20160718
